FAERS Safety Report 4609107-7 (Version None)
Quarter: 2005Q2

REPORT INFORMATION
  Report Type: 
  Country: None (occurrence: None)
  Receive Date: 20050301
  Receipt Date: 20040211
  Transmission Date: 20051028
  Serious: Yes (Hospitalization)
  Sender: FDA-Public Use
  Company Number: 20040200145

PATIENT
  Age: 25 Year
  Sex: Female

DRUGS (6)
  1. REGLAN [Suspect]
     Indication: NAUSEA
     Dosage: 10 MG TID IV
     Route: 042
     Dates: start: 20020327
  2. REGLAN [Suspect]
     Indication: VOMITING
     Dosage: 10 MG TID IV
     Route: 042
     Dates: start: 20020327
  3. PROTIUM (PANTOPRAZOLE) [Suspect]
     Indication: GASTRITIS
     Dosage: 30 MG DAILY PO
     Route: 048
     Dates: start: 20020327, end: 20020405
  4. CYCLIZINE [Concomitant]
  5. WARFARIN [Concomitant]
  6. EPILIN (VALPROATE SODIUM) [Concomitant]

REACTIONS (1)
  - LIVER FUNCTION TEST ABNORMAL [None]
